FAERS Safety Report 6275714-1 (Version None)
Quarter: 2009Q3

REPORT INFORMATION
  Report Type: 
  Country: None (occurrence: None)
  Receive Date: 20090721
  Receipt Date: 20090713
  Transmission Date: 20100115
  Serious: Yes (Disabling)
  Sender: FDA-Public Use
  Company Number: PHHY2009GB26372

PATIENT
  Sex: Female

DRUGS (2)
  1. IMATINIB MESYLATE [Suspect]
     Indication: CHRONIC MYELOID LEUKAEMIA
     Dosage: 400 MG, UNK
     Route: 048
     Dates: start: 20070917
  2. ALLOPURINOL [Suspect]
     Dosage: UNK
     Dates: end: 20071001

REACTIONS (6)
  - INCREASED TENDENCY TO BRUISE [None]
  - OEDEMA PERIPHERAL [None]
  - PERIORBITAL OEDEMA [None]
  - RASH ERYTHEMATOUS [None]
  - SKIN ATROPHY [None]
  - SKIN DISORDER [None]
